FAERS Safety Report 21897906 (Version 4)
Quarter: 2024Q1

REPORT INFORMATION
  Report Type: Spontaneous
  Country: US (occurrence: US)
  Receive Date: 20230123
  Receipt Date: 20240126
  Transmission Date: 20240410
  Serious: No
  Sender: FDA-Public Use
  Company Number: US-PFIZER INC-202300031069

PATIENT
  Age: 77 Year
  Sex: Female

DRUGS (2)
  1. CIBINQO [Suspect]
     Active Substance: ABROCITINIB
     Indication: Eczema
     Dosage: 100 MG
  2. VITAMIN D NOS [Concomitant]
     Active Substance: VITAMIN D NOS

REACTIONS (6)
  - Bacterial infection [Unknown]
  - Drug ineffective [Unknown]
  - Product prescribing error [Unknown]
  - Feeling drunk [Unknown]
  - Dizziness [Unknown]
  - Vaginal disorder [Unknown]
